FAERS Safety Report 20016448 (Version 1)
Quarter: 2021Q4

REPORT INFORMATION
  Report Type: Spontaneous
  Country: US (occurrence: None)
  Receive Date: 20211103
  Receipt Date: 20211103
  Transmission Date: 20220304
  Serious: No
  Sender: FDA-Public Use
  Company Number: None

PATIENT
  Age: 49 Year
  Sex: Female

DRUGS (2)
  1. DUPIXENT [Suspect]
     Active Substance: DUPILUMAB
     Indication: Eczema
     Dosage: OTHER FREQUENCY : EVERY 2 WEEKS;?
     Route: 058
     Dates: start: 20210112
  2. DUPIXENT [Concomitant]
     Active Substance: DUPILUMAB
     Dates: start: 20210112

REACTIONS (3)
  - Gingival disorder [None]
  - Gingival swelling [None]
  - Gingival pain [None]

NARRATIVE: CASE EVENT DATE: 20211103
